FAERS Safety Report 6864472-5 (Version None)
Quarter: 2010Q3

REPORT INFORMATION
  Report Type: 
  Country: None (occurrence: None)
  Receive Date: 20100721
  Receipt Date: 20080324
  Transmission Date: 20110219
  Serious: No
  Sender: FDA-Public Use
  Company Number: US-PFIZER INC-2008027427

PATIENT
  Sex: Female
  Weight: 68.2 kg

DRUGS (4)
  1. CHANTIX [Suspect]
     Indication: SMOKING CESSATION THERAPY
     Dates: start: 20080101
  2. CALCIUM [Concomitant]
  3. CIMETIDINE [Concomitant]
  4. ZOLPIDEM [Concomitant]

REACTIONS (8)
  - ABNORMAL DREAMS [None]
  - AGITATION [None]
  - ANXIETY [None]
  - BONE PAIN [None]
  - GASTROOESOPHAGEAL REFLUX DISEASE [None]
  - NERVOUSNESS [None]
  - POLLAKIURIA [None]
  - THINKING ABNORMAL [None]
